FAERS Safety Report 21787765 (Version 1)
Quarter: 2022Q4

REPORT INFORMATION
  Report Type: Report from Study
  Country: NL (occurrence: NL)
  Receive Date: 20221228
  Receipt Date: 20221228
  Transmission Date: 20230113
  Serious: Yes (Other)
  Sender: FDA-Public Use
  Company Number: NL-Accord-293164

PATIENT
  Age: 16 Year

DRUGS (1)
  1. METHOTREXATE [Suspect]
     Active Substance: METHOTREXATE
     Indication: Osteosarcoma
     Dosage: TOXICITY 20% DOSE REDUCTION

REACTIONS (2)
  - Stomatitis [Unknown]
  - Febrile neutropenia [Unknown]
